FAERS Safety Report 8690964 (Version 2)
Quarter: 2013Q4

REPORT INFORMATION
  Report Type: Report from Study
  Country: US (occurrence: US)
  Receive Date: 20120730
  Receipt Date: 20131101
  Transmission Date: 20140711
  Serious: No
  Sender: FDA-Public Use
  Company Number: US-009507513-1207USA005331

PATIENT
  Age: 48 Year
  Sex: Male
  Weight: 105.6 kg

DRUGS (2)
  1. REBETOL [Suspect]
     Indication: HEPATITIS C
  2. GS-5885 [Suspect]
     Indication: HEPATITIS C

REACTIONS (1)
  - Overdose [Unknown]
